FAERS Safety Report 6289607-7 (Version None)
Quarter: 2009Q3

REPORT INFORMATION
  Report Type: 
  Country: None (occurrence: None)
  Receive Date: 20090730
  Receipt Date: 20090720
  Transmission Date: 20100115
  Serious: Yes (Death, Hospitalization)
  Sender: FDA-Public Use
  Company Number: JP-ABBOTT-09P-087-0584129-00

PATIENT
  Age: 81 Year
  Sex: Male
  Weight: 49 kg

DRUGS (4)
  1. LEUPLIN SR FOR INJECTION 11.25 MG [Suspect]
     Indication: PROSTATE CANCER STAGE IV
     Route: 058
     Dates: start: 20060208, end: 20070207
  2. CASODEX [Concomitant]
     Indication: PROSTATE CANCER STAGE IV
     Route: 048
  3. BESACOLIN [Concomitant]
     Indication: DYSURIA
     Route: 048
     Dates: start: 20060809, end: 20070227
  4. HARNAL [Concomitant]
     Indication: DYSURIA
     Route: 048
     Dates: start: 20060809, end: 20070227

REACTIONS (1)
  - AGRANULOCYTOSIS [None]
